FAERS Safety Report 22989027 (Version 6)
Quarter: 2023Q4

REPORT INFORMATION
  Report Type: Report from Study
  Country: PT (occurrence: PT)
  Receive Date: 20230927
  Receipt Date: 20231228
  Transmission Date: 20240109
  Serious: Yes (Other)
  Sender: FDA-Public Use
  Company Number: PT-ABBVIE-5311885

PATIENT
  Age: 73 Year
  Sex: Female

DRUGS (17)
  1. CARBIDOPA\LEVODOPA [Suspect]
     Active Substance: CARBIDOPA\LEVODOPA
     Indication: Parkinson^s disease
     Dosage: 20 MG + 5 MG?FREQUENCY TEXT: MORN:14.5CC;MAIN:4.6CC/H;EXTRA:2CC?LAST ADMIN DATE:JUN 2023
     Route: 050
     Dates: start: 20230612, end: 202306
  2. CARBIDOPA\LEVODOPA [Suspect]
     Active Substance: CARBIDOPA\LEVODOPA
     Dosage: 20 MG + 5 MG?MORN:19.5CC;MAIN:5.7CC/H;EXTRA:2CC
     Route: 050
     Dates: start: 20230628, end: 202308
  3. CARBIDOPA\LEVODOPA [Suspect]
     Active Substance: CARBIDOPA\LEVODOPA
     Dosage: 20 MG + 5 MG?LAST ADMIN DATE 2023?MORN:18.5CC;MAIN:5.4CC/H;EXTRA:2CC
     Dates: start: 20230919
  4. CARBIDOPA\LEVODOPA [Suspect]
     Active Substance: CARBIDOPA\LEVODOPA
     Dosage: 20 MG + 5 MG?MORN:14.5CC;MAIN:4.6CC/H;EXTRA:2CC
     Route: 050
     Dates: start: 2023
  5. CARBIDOPA\LEVODOPA [Suspect]
     Active Substance: CARBIDOPA\LEVODOPA
     Dosage: 20 MG + 5 MG?FREQUENCY TEXT: MORN:19.5CC;MAIN:5.0CC/H;EXTRA:2CC?FIRST ADMIN DATE: SEP 2023
     Route: 050
     Dates: start: 202309, end: 20230919
  6. CARBIDOPA\LEVODOPA [Suspect]
     Active Substance: CARBIDOPA\LEVODOPA
     Dosage: 20 MG + 5 MG?FREQUENCY TEXT: MORN:19.5CC;MAIN:5.5CC/H;EXTRA:2CC?FIRST ADMIN DATE: JUN 2023
     Route: 050
     Dates: start: 202306, end: 20230628
  7. CARBIDOPA\LEVODOPA [Suspect]
     Active Substance: CARBIDOPA\LEVODOPA
     Dosage: 20 MG + 5 MG?MORN:19.5CC;MAIN:5.3CC/H;EXTRA:2CC
     Route: 050
     Dates: start: 202308, end: 20230904
  8. CARBIDOPA\LEVODOPA [Suspect]
     Active Substance: CARBIDOPA\LEVODOPA
     Dosage: LAST ADMIN ADMIN : SEP 2023??MORN:19.5CC;MAIN:5.4CC/H;EXTRA:2CC
     Route: 050
     Dates: start: 20230904, end: 202309
  9. ETHYL LOFLAZEPATE [Concomitant]
     Active Substance: ETHYL LOFLAZEPATE
     Indication: Product used for unknown indication
     Dosage: FORM STRENGTH: 2 MILLIGRAM, FREQUENCY TEXT: 1 TABLET IN SOS,?START DATE TEXT: BEFORE DUODOPA
     Route: 048
  10. SINEMET CR [Concomitant]
     Active Substance: CARBIDOPA\LEVODOPA
     Indication: Product used for unknown indication
     Dosage: FREQUENCY TEXT: AT BEDTIME?1 TABLET?LAST ADMIN OCT 2023
     Route: 065
     Dates: start: 20231030
  11. CLONAZEPAM [Concomitant]
     Active Substance: CLONAZEPAM
     Indication: Product used for unknown indication
     Dosage: 1 TABLET
  12. CLONAZEPAM [Concomitant]
     Active Substance: CLONAZEPAM
     Indication: Product used for unknown indication
     Dosage: 1 TABLET?FORM STRENGTH: 0.5 MILLIGRAM, - FREQUENCY TEXT: AT BEDTIME,?START DATE TEXT: BEFORE DUODOPA
     Route: 048
  13. PERINDOPRIL [Concomitant]
     Active Substance: PERINDOPRIL
     Indication: Hypertension
     Dosage: FORM STRENGTH: 10 MG?FREQUENCY TEXT: IN THE MORNING
     Route: 048
     Dates: start: 20230628
  14. PERINDOPRIL [Concomitant]
     Active Substance: PERINDOPRIL
     Indication: Hypertension
     Dosage: AT NIGHT
     Route: 048
     Dates: start: 20230628
  15. RIVASTIGMINE [Concomitant]
     Active Substance: RIVASTIGMINE
     Indication: Product used for unknown indication
     Dosage: 4.6MG/24H, START DATE: BEFORE DUODOPA
     Route: 062
  16. ESCITALOPRAM [Concomitant]
     Active Substance: ESCITALOPRAM OXALATE
     Indication: Product used for unknown indication
     Dosage: 1 TABLET? FORM STRENGTH: 10 MILLIGRAM, START DATE TEXT: BEFORE DUODOPA
     Route: 048
  17. CLONAZEPAM-R [Concomitant]
     Indication: Product used for unknown indication
     Dosage: ^	1 TABLET^

REACTIONS (9)
  - Klebsiella infection [Not Recovered/Not Resolved]
  - Orthostatic hypotension [Recovered/Resolved]
  - White blood cell count increased [Not Recovered/Not Resolved]
  - Hallucination, visual [Recovering/Resolving]
  - Hyperhidrosis [Recovered/Resolved]
  - Pallor [Recovered/Resolved]
  - Gait disturbance [Recovering/Resolving]
  - Urine odour abnormal [Not Recovered/Not Resolved]
  - Gait disturbance [Recovering/Resolving]

NARRATIVE: CASE EVENT DATE: 20230601
